FAERS Safety Report 9613338 (Version 1)
Quarter: 2013Q3

REPORT INFORMATION
  Report Type: Spontaneous
  Country: DE (occurrence: None)
  Receive Date: 20130927
  Receipt Date: 20130927
  Transmission Date: 20140515
  Serious: Yes (Life-Threatening, Hospitalization, Disabling)
  Sender: FDA-Public Use
  Company Number: 2013037990

PATIENT
  Age: 73 Year
  Sex: Male

DRUGS (18)
  1. PRIVIGEN (IMMUNE GLOBULIN INTRAVENOUS (HUMAN) 10% LIQUID) [Suspect]
     Indication: CHRONIC LYMPHOCYTIC LEUKAEMIA
     Dosage: INTRAVENOUS (NOT OTHERWISE SPECIFIED)
     Route: 042
  2. PRIVIGEN (IMMUNE GLOBULIN INTRAVENOUS (HUMAN) 10% LIQUID) [Suspect]
     Indication: HUMORAL IMMUNE DEFECT
     Dosage: INTRAVENOUS (NOT OTHERWISE SPECIFIED)
     Route: 042
  3. FENISTIL (DIMETINDENE MALEATE) [Concomitant]
  4. FIOVAN /01319601/ (VALSARTAN) [Concomitant]
  5. TOREM /01036501/ (TORASEMIDE) [Concomitant]
  6. CITALOPRAM (CITALOPRAM) [Concomitant]
  7. PREDNI (PRENDNISOLONE ACETATE) [Concomitant]
  8. CLOMIPRAMIN (CLOMIPREAMINE HYDROCHLORIDE) [Concomitant]
  9. OPIOIDS (OPIOIDS) [Concomitant]
  10. TILIDIN (VALORON N /00628301/) [Concomitant]
  11. METAMIZOL (METAMIZOLE MAGNESIUM) [Concomitant]
  12. ONDASETRON (ONDANSETRON) [Concomitant]
  13. LOPERAMID (LOPERAMIDE HYDROCHLORIDE) [Concomitant]
  14. BERODUAL (DUOVENT) [Concomitant]
  15. PANTOZOL (PANTROPRAZOLE SODIUM) [Concomitant]
  16. SYMBICORT [Concomitant]
  17. SPIRIVA (TIOTROPIUM BROMIDE) [Concomitant]
  18. CODIOVAN (CO-DIOVAN) [Concomitant]

REACTIONS (2)
  - Cerebrovascular accident [None]
  - Off label use [None]
